FAERS Safety Report 4595995-X (Version None)
Quarter: 2005Q1

REPORT INFORMATION
  Report Type: 
  Country: None (occurrence: None)
  Receive Date: 20050224
  Receipt Date: 20050204
  Transmission Date: 20050727
  Serious: Yes (Other)
  Sender: FDA-Public Use
  Company Number: DE_041014423

PATIENT
  Age: 60 Year
  Sex: Male

DRUGS (2)
  1. CIALIS [Suspect]
     Indication: ERECTILE DYSFUNCTION
     Dosage: 10 MG AS NEEDED
     Dates: start: 20040905, end: 20040919
  2. METFORMIN [Concomitant]

REACTIONS (7)
  - ASTIGMATISM [None]
  - CATARACT [None]
  - MYOPIA [None]
  - OPTIC NERVE DISORDER [None]
  - PRESBYOPIA [None]
  - VISUAL ACUITY REDUCED [None]
  - VISUAL FIELD DEFECT [None]
